FAERS Safety Report 7379253-6 (Version None)
Quarter: 2011Q1

REPORT INFORMATION
  Report Type: 
  Country: None (occurrence: None)
  Receive Date: 20110328
  Receipt Date: 20101116
  Transmission Date: 20110831
  Serious: Yes (Hospitalization)
  Sender: FDA-Public Use
  Company Number: FR-AMGEN-FRANI2010000664

PATIENT
  Age: 13 Year
  Sex: Female

DRUGS (9)
  1. LOVENOX [Concomitant]
  2. RENAGEL                            /01459901/ [Concomitant]
  3. SODIUM BICARBONATE [Concomitant]
  4. NORDITROPIN [Concomitant]
  5. SODIUM POLYSTYRENE SULFONATE [Concomitant]
  6. RENITEC                            /00574901/ [Concomitant]
  7. DARBEPOETIN ALFA [Suspect]
     Indication: RENAL FAILURE CHRONIC
     Dosage: UNK UNK, Q2WK
     Route: 058
     Dates: start: 20090404
  8. ROCALTROL [Concomitant]
  9. CALCIUM CARBONATE [Concomitant]

REACTIONS (1)
  - CYSTITIS [None]
